FAERS Safety Report 20937353 (Version 7)
Quarter: 2022Q4

REPORT INFORMATION
  Report Type: Report from Study
  Country: JP (occurrence: JP)
  Receive Date: 20220609
  Receipt Date: 20221207
  Transmission Date: 20230113
  Serious: Yes (Hospitalization, Other)
  Sender: FDA-Public Use
  Company Number: JP-BRISTOL-MYERS SQUIBB COMPANY-2022-014554

PATIENT
  Age: 79 Year
  Sex: Male
  Weight: 62.2 kg

DRUGS (23)
  1. YERVOY [Suspect]
     Active Substance: IPILIMUMAB
     Indication: Metastatic renal cell carcinoma
     Dosage: 1 MG/KG
     Route: 042
     Dates: start: 20201202, end: 20210203
  2. YERVOY [Suspect]
     Active Substance: IPILIMUMAB
     Route: 042
     Dates: start: 20201223, end: 20201223
  3. YERVOY [Suspect]
     Active Substance: IPILIMUMAB
     Route: 042
     Dates: start: 20210113, end: 20210113
  4. YERVOY [Suspect]
     Active Substance: IPILIMUMAB
     Route: 042
     Dates: start: 20210203, end: 20210203
  5. OPDIVO [Suspect]
     Active Substance: NIVOLUMAB
     Indication: Metastatic renal cell carcinoma
     Route: 041
     Dates: start: 20201202, end: 20201202
  6. OPDIVO [Suspect]
     Active Substance: NIVOLUMAB
     Route: 041
     Dates: start: 20201223, end: 20201223
  7. OPDIVO [Suspect]
     Active Substance: NIVOLUMAB
     Route: 041
     Dates: start: 20210113, end: 20210113
  8. OPDIVO [Suspect]
     Active Substance: NIVOLUMAB
     Route: 041
     Dates: start: 20210203, end: 20210203
  9. OPDIVO [Suspect]
     Active Substance: NIVOLUMAB
     Route: 041
     Dates: start: 20210224, end: 20210224
  10. OPDIVO [Suspect]
     Active Substance: NIVOLUMAB
     Route: 041
     Dates: start: 20220209, end: 20220209
  11. OPDIVO [Suspect]
     Active Substance: NIVOLUMAB
     Route: 041
     Dates: start: 20220302, end: 20220302
  12. OPDIVO [Suspect]
     Active Substance: NIVOLUMAB
     Route: 041
     Dates: start: 20220316, end: 20220316
  13. OPDIVO [Suspect]
     Active Substance: NIVOLUMAB
     Route: 041
     Dates: start: 20220330, end: 20220330
  14. OPDIVO [Suspect]
     Active Substance: NIVOLUMAB
     Route: 041
     Dates: start: 20220413, end: 20220413
  15. OPDIVO [Suspect]
     Active Substance: NIVOLUMAB
     Route: 041
     Dates: start: 20220525, end: 20220525
  16. OPDIVO [Suspect]
     Active Substance: NIVOLUMAB
     Route: 041
     Dates: start: 20220622, end: 20220622
  17. OPDIVO [Suspect]
     Active Substance: NIVOLUMAB
     Route: 041
     Dates: start: 20220720, end: 20220720
  18. AMLODIPINE [Concomitant]
     Active Substance: AMLODIPINE BESYLATE
     Indication: Product used for unknown indication
     Route: 065
  19. AMLODIPINE [Concomitant]
     Active Substance: AMLODIPINE BESYLATE
  20. BENZBROMARONE [Concomitant]
     Active Substance: BENZBROMARONE
     Indication: Product used for unknown indication
     Dosage: UNK
     Route: 065
  21. BENZBROMARONE [Concomitant]
     Active Substance: BENZBROMARONE
  22. BENZBROMARONE [Concomitant]
     Active Substance: BENZBROMARONE
  23. ATORVASTATIN [Concomitant]
     Active Substance: ATORVASTATIN
     Indication: Product used for unknown indication
     Route: 065

REACTIONS (7)
  - Nausea [Recovered/Resolved]
  - Hypopituitarism [Recovering/Resolving]
  - Hyperkalaemia [Recovered/Resolved]
  - Staphylococcal bacteraemia [Recovering/Resolving]
  - Secondary adrenocortical insufficiency [Recovering/Resolving]
  - Adrenal insufficiency [Recovering/Resolving]
  - Malignant neoplasm progression [Unknown]

NARRATIVE: CASE EVENT DATE: 20201210
